FAERS Safety Report 13114493 (Version 3)
Quarter: 2017Q1

REPORT INFORMATION
  Report Type: Report from Study
  Country: TR (occurrence: TR)
  Receive Date: 20170113
  Receipt Date: 20170301
  Transmission Date: 20170428
  Serious: Yes (Hospitalization)
  Sender: FDA-Public Use
  Company Number: TR-PFIZER INC-2017003337

PATIENT
  Age: 80 Year
  Sex: Male

DRUGS (28)
  1. BEVACIZUMAB [Suspect]
     Active Substance: BEVACIZUMAB
     Indication: NON-SMALL CELL LUNG CANCER
     Dosage: 990 MG, EVERY 21 DAYS
     Route: 042
     Dates: start: 20161021, end: 20161021
  2. PACLITAXEL. [Suspect]
     Active Substance: PACLITAXEL
     Dosage: 354 MG, EVERY 21 DAYS
     Route: 042
     Dates: start: 20161215
  3. COVERSYL /00790703/ [Concomitant]
     Active Substance: PERINDOPRIL
     Indication: HYPERTENSION
     Dosage: 5 MG, 1X/DAY
     Route: 048
     Dates: start: 2014
  4. REGAPEN [Concomitant]
     Dosage: 150 MG, 1X/DAY
     Route: 048
     Dates: start: 20161103
  5. BEVACIZUMAB [Suspect]
     Active Substance: BEVACIZUMAB
     Dosage: 990 MG, EVERY 21 DAYS
     Route: 042
     Dates: start: 20161215
  6. XARELTO [Concomitant]
     Active Substance: RIVAROXABAN
     Indication: ANTICOAGULANT THERAPY
     Dosage: 15 MG, 1X/DAY
     Route: 048
     Dates: start: 2015
  7. SINECOD [Concomitant]
     Active Substance: BUTAMIRATE CITRATE
     Indication: COUGH
     Dosage: 50 MG, 3X/DAY
     Route: 048
     Dates: start: 20161103
  8. ONZYD [Concomitant]
     Indication: VOMITING
  9. ATORVASTATIN [Concomitant]
     Active Substance: ATORVASTATIN
     Indication: BLOOD CHOLESTEROL ABNORMAL
     Dosage: UNK
     Route: 048
     Dates: start: 2014
  10. ONZYD [Concomitant]
     Indication: NAUSEA
     Dosage: 4 MG, 2X/DAY
     Route: 048
     Dates: start: 20161122
  11. DUPHALAC [Concomitant]
     Active Substance: LACTULOSE
     Indication: CONSTIPATION
     Dosage: 670 MG/ML, 1X/DAY
     Route: 048
     Dates: start: 20161103, end: 20161106
  12. ATARAX [Concomitant]
     Active Substance: HYDROXYZINE HYDROCHLORIDE
     Indication: INSOMNIA
     Dosage: 25 MG, 1X/DAY
     Route: 048
     Dates: start: 20161122
  13. PACLITAXEL. [Suspect]
     Active Substance: PACLITAXEL
     Indication: NON-SMALL CELL LUNG CANCER
     Dosage: 354 MG, EVERY 21 DAYS
     Route: 042
     Dates: start: 20161021, end: 20161021
  14. CARBOPLATIN. [Suspect]
     Active Substance: CARBOPLATIN
     Dosage: 455 MG, EVERY 21 DAYS
     Route: 042
     Dates: start: 20161215
  15. REGAPEN [Concomitant]
     Indication: NEUROPATHY PERIPHERAL
     Dosage: 75 MG, 1X/DAY
     Route: 048
     Dates: start: 20161103
  16. LOPERMID [Concomitant]
     Indication: DIARRHOEA
     Dosage: 2 MG, 2X/DAY
     Route: 048
     Dates: start: 20161122
  17. PACLITAXEL. [Suspect]
     Active Substance: PACLITAXEL
     Dosage: 370 MG, EVERY 21 DAYS
     Route: 042
     Dates: start: 20161111, end: 20161111
  18. BELOC-ZOK COMP [Concomitant]
     Active Substance: HYDROCHLOROTHIAZIDE\METOPROLOL SUCCINATE
     Indication: HYPERTENSION
     Dosage: 50 MG, 1X/DAY
     Route: 048
     Dates: start: 2014
  19. FILGRASTIM [Concomitant]
     Active Substance: FILGRASTIM
     Indication: NEUTROPENIA
     Dosage: 30 MILLION IU, 1X/DAY
     Route: 058
     Dates: start: 20161030, end: 20161031
  20. PERGE [Concomitant]
     Indication: NEUROPATHY PERIPHERAL
     Dosage: 150 MG, 2X/DAY
     Route: 048
     Dates: start: 20161223
  21. GRANOCYTE [Concomitant]
     Active Substance: LENOGRASTIM
     Indication: NEUTROPENIA
     Dosage: UNK UNK, 1X/DAY
     Route: 058
     Dates: start: 20161223, end: 20161226
  22. CARBOPLATIN. [Suspect]
     Active Substance: CARBOPLATIN
     Dosage: 491 MG, EVERY 21 DAYS
     Route: 042
     Dates: start: 20161111, end: 20161111
  23. PAROL [Concomitant]
     Active Substance: ACETAMINOPHEN
     Indication: ANALGESIC THERAPY
     Dosage: 30 MG, 3X/DAY
     Route: 048
     Dates: start: 20161027
  24. DUPHALAC [Concomitant]
     Active Substance: LACTULOSE
     Dosage: 670 MG/ML, 1X/DAY
     Route: 048
     Dates: start: 20161212
  25. BEVACIZUMAB [Suspect]
     Active Substance: BEVACIZUMAB
     Dosage: 1035 MG, EVERY 21 DAYS
     Route: 042
     Dates: start: 20161111, end: 20161111
  26. CARBOPLATIN. [Suspect]
     Active Substance: CARBOPLATIN
     Indication: NON-SMALL CELL LUNG CANCER
     Dosage: 461 MG, EVERY 21 DAYS
     Route: 042
     Dates: start: 20161021, end: 20161021
  27. CATAFLAM /00372302/ [Concomitant]
     Active Substance: DICLOFENAC POTASSIUM
     Indication: ANALGESIC THERAPY
     Dosage: 50 MG, 3X/DAY
     Route: 048
     Dates: start: 20161027
  28. SINECOD [Concomitant]
     Active Substance: BUTAMIRATE CITRATE
     Indication: HAEMOPTYSIS

REACTIONS (1)
  - Cough [Recovered/Resolved]

NARRATIVE: CASE EVENT DATE: 20161225
